FAERS Safety Report 16716082 (Version 5)
Quarter: 2019Q4

REPORT INFORMATION
  Report Type: Spontaneous
  Country: FI (occurrence: FI)
  Receive Date: 20190819
  Receipt Date: 20191120
  Transmission Date: 20200122
  Serious: Yes (Hospitalization)
  Sender: FDA-Public Use
  Company Number: FI-NOVOPROD-679100

PATIENT
  Age: 37 Year
  Sex: Female
  Weight: 83 kg

DRUGS (2)
  1. NOVORAPID [Suspect]
     Active Substance: INSULIN ASPART
     Indication: DIABETES MELLITUS
     Dosage: 22 IU, QD
     Route: 058
     Dates: start: 20190802, end: 20190803
  2. NOVORAPID [Suspect]
     Active Substance: INSULIN ASPART
     Dosage: 22 IU, QD(CARTRIDGE CHANGED)
     Route: 058

REACTIONS (4)
  - Product leakage [Unknown]
  - Product leakage [Unknown]
  - Diabetic ketoacidosis [Unknown]
  - Blood glucose increased [Recovered/Resolved]

NARRATIVE: CASE EVENT DATE: 20190802
